FAERS Safety Report 21194515 (Version 1)
Quarter: 2022Q3

REPORT INFORMATION
  Report Type: Spontaneous
  Country: US (occurrence: US)
  Receive Date: 20220810
  Receipt Date: 20220810
  Transmission Date: 20221026
  Serious: Yes (Other)
  Sender: FDA-Public Use
  Company Number: US-PFIZER INC-202201046251

PATIENT
  Age: 59 Year
  Sex: Female

DRUGS (1)
  1. XELJANZ [Suspect]
     Active Substance: TOFACITINIB CITRATE
     Dosage: 5 MG, 2X/DAY
     Dates: start: 20220714

REACTIONS (4)
  - Palpitations [Recovered/Resolved]
  - Fatigue [Not Recovered/Not Resolved]
  - Euphoric mood [Recovered/Resolved]
  - Stress [Unknown]

NARRATIVE: CASE EVENT DATE: 20220101
